FAERS Safety Report 4723330-2 (Version None)
Quarter: 2005Q3

REPORT INFORMATION
  Report Type: 
  Country: None (occurrence: None)
  Receive Date: 20050725
  Receipt Date: 20040809
  Transmission Date: 20060218
  Serious: No
  Sender: FDA-Public Use
  Company Number: US-BRISTOL-MYERS SQUIBB COMPANY-12664850

PATIENT
  Age: 59 Year
  Sex: Female
  Weight: 63 kg

DRUGS (7)
  1. ESTRACE [Suspect]
     Indication: MENOPAUSE
     Route: 048
  2. ALLEGRA [Concomitant]
  3. ACTONEL [Concomitant]
  4. MULTI-VITAMIN [Concomitant]
  5. VITAMIN E [Concomitant]
  6. VITAMIN B COMPLEX CAP [Concomitant]
  7. CALCIUM GLUCONATE [Concomitant]

REACTIONS (1)
  - ALOPECIA [None]
